FAERS Safety Report 9448490 (Version 1)
Quarter: 2013Q3

REPORT INFORMATION
  Report Type: Spontaneous
  Country: ES (occurrence: None)
  Receive Date: 20130806
  Receipt Date: 20130806
  Transmission Date: 20140515
  Serious: Yes (Hospitalization)
  Sender: FDA-Public Use
  Company Number: 1825800

PATIENT
  Age: 60 Year
  Sex: Female
  Weight: 42 kg

DRUGS (3)
  1. OXAPLATIN [Suspect]
     Indication: COLON CANCER STAGE IV
     Dosage: (NOT OTHERWISE SPECIFIED)
     Route: 042
     Dates: start: 20130624, end: 20130705
  2. CETUXIMAB [Suspect]
     Indication: COLON CANCER STAGE IV
     Dosage: (NOT OTHERWISE SPECIFIED)
     Route: 042
     Dates: start: 20130624, end: 20130705
  3. FLUOROURACIL [Suspect]
     Indication: PRODUCT USED FOR UNKNOWN INDICATION
     Dosage: (NOT OTHERWISE SPECIFIED)
     Route: 042
     Dates: start: 20130624, end: 20130705

REACTIONS (4)
  - Hypocalcaemia [None]
  - Hypomagnesaemia [None]
  - Electrolyte imbalance [None]
  - Hypokalaemia [None]
